FAERS Safety Report 5417958-4 (Version None)
Quarter: 2007Q3

REPORT INFORMATION
  Report Type: 
  Country: None (occurrence: None)
  Receive Date: 20070815
  Receipt Date: 20070731
  Transmission Date: 20080115
  Serious: Yes (Life-Threatening)
  Sender: FDA-Public Use
  Company Number: 2007001407

PATIENT
  Age: 52 Year
  Sex: Male
  Weight: 78 kg

DRUGS (17)
  1. ERLOTINIB (TABLET) [Suspect]
     Indication: PANCREATIC CARCINOMA METASTATIC
     Dosage: 100 MG (QD), ORAL
     Route: 048
     Dates: start: 20070517
  2. BEVACIZUMAB (INJECTION FOR INFUSION) [Suspect]
     Indication: PANCREATIC CARCINOMA METASTATIC
     Dosage: SEE IMAGE
     Dates: start: 20070209, end: 20070413
  3. BEVACIZUMAB (INJECTION FOR INFUSION) [Suspect]
     Indication: PANCREATIC CARCINOMA METASTATIC
     Dosage: SEE IMAGE
     Dates: start: 20070517
  4. GEMCITABINE [Suspect]
     Indication: PANCREATIC CARCINOMA METASTATIC
     Dosage: 1000 MG/M2 (DAYS 1, 8, 15.), INTRAVENOUS
     Route: 042
     Dates: start: 20070517
  5. ATIVAN [Concomitant]
  6. CELEXA [Concomitant]
  7. COLACE (DOCUSATE SODIUM) [Concomitant]
  8. MIRALAX [Concomitant]
  9. MLD SOLUTION [Concomitant]
  10. OXYCODONE HCL [Concomitant]
  11. OXYCONTIN [Concomitant]
  12. PERIDEX MOUTH WASH (CHLORHEXIDINE GLUCONATE) [Concomitant]
  13. REGLAN [Concomitant]
  14. SENNA TABS (SENNA) [Concomitant]
  15. SIMETHICONE (DIMETICONE, ACTIVATED) [Concomitant]
  16. ACETAMINOPHEN [Concomitant]
  17. ZYPREXA [Concomitant]

REACTIONS (2)
  - DISEASE PROGRESSION [None]
  - PULMONARY EMBOLISM [None]
